FAERS Safety Report 8783631 (Version 1)
Quarter: 2012Q4

REPORT INFORMATION
  Report Type: Report from Study
  Country: US (occurrence: US)
  Receive Date: 20120913
  Receipt Date: 20120913
  Transmission Date: 20130627
  Serious: No
  Sender: FDA-Public Use
  Company Number: US-VERTEX PHARMACEUTICAL INC.-AE-2012-009210

PATIENT
  Age: 48 Year
  Sex: Female
  Weight: 104.33 kg

DRUGS (7)
  1. INCIVEK [Suspect]
     Indication: HEPATITIS C
     Route: 048
     Dates: start: 20120604
  2. RIBAVIRIN [Concomitant]
     Indication: HEPATITIS C
     Route: 048
     Dates: start: 20120604
  3. PEGINTRON [Concomitant]
     Indication: HEPATITIS C
     Route: 058
     Dates: start: 20120604
  4. EFFEXOR [Concomitant]
     Indication: DEPRESSION
     Route: 048
  5. IBUPROFEN [Concomitant]
     Indication: PAIN
     Route: 048
  6. TRAMADOL [Concomitant]
     Indication: NEURALGIA
     Route: 048
  7. HEARTBURN PILL [Concomitant]

REACTIONS (3)
  - Fatigue [Not Recovered/Not Resolved]
  - Rash [Not Recovered/Not Resolved]
  - Pruritus [Not Recovered/Not Resolved]
